FAERS Safety Report 10540309 (Version 3)
Quarter: 2014Q4

REPORT INFORMATION
  Report Type: Spontaneous
  Country: US (occurrence: US)
  Receive Date: 20141024
  Receipt Date: 20141126
  Transmission Date: 20150529
  Serious: No
  Sender: FDA-Public Use
  Company Number: US-PFIZER INC-2014291024

PATIENT
  Age: 70 Year
  Sex: Female

DRUGS (7)
  1. CLONAZEPAM. [Concomitant]
     Active Substance: CLONAZEPAM
     Dosage: 0.5 MG, UNK
  2. LABETALOL HYDROCHLORIDE. [Concomitant]
     Active Substance: LABETALOL HYDROCHLORIDE
     Dosage: 300 MG, UNK
  3. AMLODIPINE BESILATE [Concomitant]
     Active Substance: AMLODIPINE BESYLATE
     Dosage: 10 MG, UNK
  4. VENLAFAXINE HCL [Suspect]
     Active Substance: VENLAFAXINE HYDROCHLORIDE
     Indication: PSYCHOTHERAPY
     Dosage: 225 MG, 1X/DAY IN MORNING
     Dates: start: 20130312
  5. AMOXICILLIN. [Suspect]
     Active Substance: AMOXICILLIN
     Indication: ROOT CANAL INFECTION
     Dosage: 150+500+835, 3X/DAY
     Dates: start: 20140912, end: 20140927
  6. AMOXICILLIN. [Suspect]
     Active Substance: AMOXICILLIN
     Indication: ABSCESS
  7. RISPERDAL [Concomitant]
     Active Substance: RISPERIDONE
     Dosage: 2 MG, UNK

REACTIONS (3)
  - Abscess [Recovered/Resolved]
  - Root canal infection [Recovered/Resolved]
  - Drug ineffective [Unknown]

NARRATIVE: CASE EVENT DATE: 2014
